FAERS Safety Report 18584903 (Version 4)
Quarter: 2020Q4

REPORT INFORMATION
  Report Type: Spontaneous
  Country: JP (occurrence: JP)
  Receive Date: 20201207
  Receipt Date: 20201228
  Transmission Date: 20210114
  Serious: Yes (Hospitalization)
  Sender: FDA-Public Use
  Company Number: JP-FERRINGPH-2020FE08536

PATIENT
  Age: 50 Year
  Sex: Male

DRUGS (12)
  1. VALSARTAN. [Concomitant]
     Active Substance: VALSARTAN
     Route: 065
  2. DESMOPRESSIN KYOWA [Suspect]
     Active Substance: DESMOPRESSIN
     Indication: DIABETES INSIPIDUS
     Dosage: 2 DF, 4 TIMES DAILY
     Route: 065
  3. REBAMIPIDE [Concomitant]
     Active Substance: REBAMIPIDE
     Route: 065
  4. CORTRIL [Concomitant]
     Active Substance: HYDROCORTISONE
     Route: 065
  5. AMLODIPINE [Concomitant]
     Active Substance: AMLODIPINE BESYLATE
     Route: 065
  6. MINIRINMELT [Suspect]
     Active Substance: DESMOPRESSIN ACETATE
     Indication: DIABETES INSIPIDUS
     Dosage: 300 UG, DAILY (120 MCG IN THE MORNING, 60 MCG IN THE AFTERNOON, AND 120 MCG IN THE EVENING)
     Route: 050
  7. THYRADIN [Concomitant]
     Active Substance: LEVOTHYROXINE
     Route: 065
  8. ATORVASTATIN [Concomitant]
     Active Substance: ATORVASTATIN
     Route: 065
  9. GLYCYRON [DL-METHIONINE;GLYCINE;GLYCYRRHIZIC ACID, AMMONIUM SALT] [Concomitant]
     Active Substance: AMMONIUM GLYCYRRHIZATE\GLYCINE\RACEMETHIONINE
     Route: 065
  10. SODIUM VALPROATE [Concomitant]
     Active Substance: VALPROATE SODIUM
     Route: 065
  11. ANTIBIOTICS [Concomitant]
     Active Substance: UNSPECIFIED INGREDIENT
     Route: 065
  12. DESMOPRESSIN KYOWA [Suspect]
     Active Substance: DESMOPRESSIN
     Dosage: 2 DF, AS NECESSARY
     Route: 065

REACTIONS (8)
  - Blood sodium increased [Unknown]
  - Pneumonia aspiration [Unknown]
  - Therapeutic response decreased [Unknown]
  - Altered state of consciousness [Unknown]
  - Urine output increased [Unknown]
  - Therapeutic response decreased [Unknown]
  - Product prescribing error [Unknown]
  - Product use issue [Unknown]

NARRATIVE: CASE EVENT DATE: 20201123
